FAERS Safety Report 5767531-3 (Version None)
Quarter: 2008Q2

REPORT INFORMATION
  Report Type: 
  Country: None (occurrence: None)
  Receive Date: 20080611
  Receipt Date: 20080611
  Transmission Date: 20081010
  Serious: Yes (Hospitalization)
  Sender: FDA-Public Use
  Company Number: None

PATIENT
  Age: 75 Year
  Sex: Male
  Weight: 98 kg

DRUGS (2)
  1. MECLIZINE [Suspect]
     Indication: VERTIGO
     Dosage: 25 MG QID PO
     Route: 048
     Dates: start: 20050516, end: 20080602
  2. OXYCODONE HCL [Suspect]
     Indication: PAIN
     Dosage: 20 MG TID PO
     Route: 048
     Dates: start: 20080531, end: 20080602

REACTIONS (2)
  - DIZZINESS [None]
  - ORTHOSTATIC HYPOTENSION [None]
